FAERS Safety Report 16490035 (Version 4)
Quarter: 2021Q1

REPORT INFORMATION
  Report Type: Spontaneous
  Country: DE (occurrence: DE)
  Receive Date: 20190628
  Receipt Date: 20210310
  Transmission Date: 20210419
  Serious: Yes (Hospitalization, Congenital Anomaly, Other)
  Sender: FDA-Public Use
  Company Number: DE-ASTRAZENECA-2019SE91248

PATIENT
  Age: 7 Week
  Sex: Female
  Weight: 1.6 kg

DRUGS (25)
  1. RISPERDAL CONSTA [Suspect]
     Active Substance: RISPERIDONE
     Indication: PSYCHOTIC DISORDER
     Dosage: 25 MG/2WEEKS (AB 4.4 3WEEKS)/ TILL WK 5 EVERY 2 WKS
     Route: 064
     Dates: start: 201104, end: 2011
  2. RISPERDAL CONSTA [Suspect]
     Active Substance: RISPERIDONE
     Indication: PSYCHOTIC DISORDER
     Dosage: 25 MG EVERY 3 WEEKS
     Route: 064
     Dates: start: 2011, end: 20111124
  3. IBUPROFEN. [Concomitant]
     Active Substance: IBUPROFEN
     Indication: TRIGEMINAL NEURALGIA
     Dosage: 1 OT AS NEEDED (PRN)
     Route: 064
     Dates: start: 20110927, end: 20111124
  4. BETAMETHASON [Concomitant]
     Active Substance: BETAMETHASONE
     Indication: MATERNAL THERAPY TO ENHANCE FOETAL LUNG MATURITY
     Route: 064
     Dates: start: 20111120, end: 20111121
  5. ACETYLSALICYLSACURE [Concomitant]
     Indication: FOETAL EXPOSURE DURING PREGNANCY
     Route: 064
     Dates: start: 2011, end: 20111120
  6. SEROQUEL [Suspect]
     Active Substance: QUETIAPINE FUMARATE
     Indication: PSYCHOTIC DISORDER
     Route: 064
     Dates: start: 201104, end: 201105
  7. PROMETHAZINE HYDROCHLORIDE. [Suspect]
     Active Substance: PROMETHAZINE HYDROCHLORIDE
     Indication: RESTLESSNESS
     Route: 064
     Dates: start: 20110527, end: 2011
  8. RISPERDAL CONSTA [Suspect]
     Active Substance: RISPERIDONE
     Indication: FOETAL EXPOSURE DURING PREGNANCY
     Dosage: 25 MG/2WEEKS (AB 4.4 3WEEKS)/ TILL WK 5 EVERY 2 WKS
     Route: 064
     Dates: start: 201104, end: 2011
  9. SEROQUEL [Suspect]
     Active Substance: QUETIAPINE FUMARATE
     Indication: FOETAL EXPOSURE DURING PREGNANCY
     Route: 064
     Dates: start: 201104, end: 201105
  10. SEROQUEL [Suspect]
     Active Substance: QUETIAPINE FUMARATE
     Indication: FOETAL EXPOSURE DURING PREGNANCY
     Route: 064
     Dates: start: 201105, end: 20111124
  11. CARBAMAZEPIN [Concomitant]
     Active Substance: CARBAMAZEPINE
     Indication: TRIGEMINAL NEURALGIA
     Route: 064
     Dates: start: 20110927, end: 20111124
  12. INSULIN [Concomitant]
     Active Substance: INSULIN NOS
     Indication: FOETAL EXPOSURE DURING PREGNANCY
     Dosage: FROM GESTATIONAL WEEK 27
     Route: 064
     Dates: start: 2011
  13. ACETYLSALICYLSACURE [Concomitant]
     Indication: PRE-ECLAMPSIA
     Route: 064
     Dates: start: 2011, end: 20111120
  14. MELPERON [Concomitant]
     Active Substance: MELPERONE
     Indication: FOETAL EXPOSURE DURING PREGNANCY
     Route: 064
     Dates: start: 201104, end: 20110516
  15. TOLPERISON [Concomitant]
     Active Substance: TOLPERISONE HYDROCHLORIDE
     Indication: FOETAL EXPOSURE DURING PREGNANCY
     Route: 064
     Dates: start: 201104, end: 20110516
  16. INSULIN [Concomitant]
     Active Substance: INSULIN NOS
     Indication: GESTATIONAL DIABETES
     Dosage: FROM GESTATIONAL WEEK 27
     Route: 064
     Dates: start: 2011
  17. RISPERDAL CONSTA [Suspect]
     Active Substance: RISPERIDONE
     Indication: FOETAL EXPOSURE DURING PREGNANCY
     Dosage: 25 MG EVERY 3 WEEKS
     Route: 064
     Dates: start: 2011, end: 20111124
  18. IBUPROFEN. [Concomitant]
     Active Substance: IBUPROFEN
     Indication: FOETAL EXPOSURE DURING PREGNANCY
     Dosage: 1 OT AS NEEDED (PRN)
     Route: 064
     Dates: start: 20110927, end: 20111124
  19. SEROQUEL [Suspect]
     Active Substance: QUETIAPINE FUMARATE
     Indication: PSYCHOTIC DISORDER
     Route: 064
     Dates: start: 201105, end: 20111124
  20. PROMETHAZINE HYDROCHLORIDE. [Suspect]
     Active Substance: PROMETHAZINE HYDROCHLORIDE
     Indication: FOETAL EXPOSURE DURING PREGNANCY
     Route: 064
     Dates: start: 20110527, end: 2011
  21. BETAMETHASON [Concomitant]
     Active Substance: BETAMETHASONE
     Indication: FOETAL EXPOSURE DURING PREGNANCY
     Route: 064
     Dates: start: 20111120, end: 20111121
  22. MELPERON [Concomitant]
     Active Substance: MELPERONE
     Indication: PSYCHOTIC DISORDER
     Route: 064
     Dates: start: 201104, end: 20110516
  23. PROMETHAZINE HYDROCHLORIDE. [Suspect]
     Active Substance: PROMETHAZINE HYDROCHLORIDE
     Indication: RESTLESSNESS
     Route: 064
     Dates: start: 2011, end: 20111124
  24. PROMETHAZINE HYDROCHLORIDE. [Suspect]
     Active Substance: PROMETHAZINE HYDROCHLORIDE
     Indication: FOETAL EXPOSURE DURING PREGNANCY
     Route: 064
     Dates: start: 2011, end: 20111124
  25. CARBAMAZEPIN [Concomitant]
     Active Substance: CARBAMAZEPINE
     Indication: FOETAL EXPOSURE DURING PREGNANCY
     Route: 064
     Dates: start: 20110927, end: 20111124

REACTIONS (6)
  - Oesophageal atresia [Recovered/Resolved with Sequelae]
  - Tracheo-oesophageal fistula [Recovered/Resolved with Sequelae]
  - Haemangioma congenital [Unknown]
  - Maternal exposure during pregnancy [Recovered/Resolved]
  - Premature baby [Unknown]
  - Low birth weight baby [Unknown]

NARRATIVE: CASE EVENT DATE: 20110527
